FAERS Safety Report 8286718-1 (Version None)
Quarter: 2012Q2

REPORT INFORMATION
  Report Type: 
  Country: None (occurrence: None)
  Receive Date: 20120411
  Receipt Date: 20120310
  Transmission Date: 20120825
  Serious: Yes (Other)
  Sender: FDA-Public Use
  Company Number: AUR-APL-2012-00704

PATIENT
  Sex: Female

DRUGS (4)
  1. LOSARATN POTASSIUM+HYDROCHLOROTHIAZIDE (HYDROCHLOROTHIAZIDE,LOSARTAN) [Suspect]
     Indication: HYPERTENSION
     Dosage: (1 DOSAGE FORMS,1 D),ORAL
     Route: 048
     Dates: start: 20111101
  2. CALCIUM CARBONATE [Concomitant]
  3. VITAMINS (KAPSOVIT) [Concomitant]
  4. FISH OIL (FISH OIL) [Concomitant]

REACTIONS (3)
  - PRODUCT QUALITY ISSUE [None]
  - BLOOD PRESSURE INADEQUATELY CONTROLLED [None]
  - PRODUCT SUBSTITUTION ISSUE [None]
